FAERS Safety Report 6307698-1 (Version None)
Quarter: 2009Q3

REPORT INFORMATION
  Report Type: 
  Country: None (occurrence: None)
  Receive Date: 20090813
  Receipt Date: 20090615
  Transmission Date: 20100115
  Serious: Yes (Hospitalization, Other)
  Sender: FDA-Public Use
  Company Number: PHEH2009US09138

PATIENT
  Sex: Male

DRUGS (2)
  1. DIOVAN [Suspect]
     Dosage: UNK, UNK
     Route: 065
  2. DIOVAN [Suspect]
     Dosage: 160 MG, BID
     Route: 065

REACTIONS (3)
  - BLOOD POTASSIUM INCREASED [None]
  - CARDIAC FAILURE [None]
  - HAEMOGLOBIN DECREASED [None]
